FAERS Safety Report 17199255 (Version 1)
Quarter: 2019Q4

REPORT INFORMATION
  Report Type: Spontaneous
  Country: CN (occurrence: CN)
  Receive Date: 20191225
  Receipt Date: 20191225
  Transmission Date: 20200122
  Serious: Yes (Disabling)
  Sender: FDA-Public Use
  Company Number: CN-BAXTER-2019BAX025959

PATIENT
  Age: 16 Year
  Sex: Male
  Weight: 59 kg

DRUGS (12)
  1. ETOPOSIDE. [Suspect]
     Active Substance: ETOPOSIDE
     Dosage: ETOPOSIDE INJECTION 165 MG + NS 500 ML
     Route: 041
     Dates: start: 20191104, end: 20191105
  2. HOLOXAN [Suspect]
     Active Substance: IFOSFAMIDE
     Dosage: IFOSFAMIDE INJECTION 3 G + NS 500 ML
     Route: 041
     Dates: start: 20191104, end: 20191105
  3. HOLOXAN [Suspect]
     Active Substance: IFOSFAMIDE
     Dosage: DOSE RE-INTRODUCED, IFOSFAMIDE INJECTION + NS
     Route: 041
  4. 0.9% SODIUM CHLORIDE INJECTION [Suspect]
     Active Substance: SODIUM CHLORIDE
     Dosage: IFOSFAMIDE INJECTION 3 G + NS 500 ML
     Route: 041
     Dates: start: 20191104, end: 20191105
  5. 0.9% SODIUM CHLORIDE INJECTION [Suspect]
     Active Substance: SODIUM CHLORIDE
     Indication: MEDICATION DILUTION
     Dosage: IFOSFAMIDE INJECTION 3 G + NS 500 ML
     Route: 041
     Dates: start: 20191030, end: 20191101
  6. ETOPOSIDE. [Suspect]
     Active Substance: ETOPOSIDE
     Indication: EWING^S SARCOMA
     Dosage: ETOPOSIDE INJECTION 165 MG + NS 500 ML
     Route: 041
     Dates: start: 20191030, end: 20191101
  7. 0.9% SODIUM CHLORIDE INJECTION [Suspect]
     Active Substance: SODIUM CHLORIDE
     Dosage: DOSE RE-INTRODUCED, IFOSFAMIDE INJECTION + NS
     Route: 041
  8. 0.9% SODIUM CHLORIDE INJECTION [Suspect]
     Active Substance: SODIUM CHLORIDE
     Dosage: ETOPOSIDE INJECTION 165 MG + NS 500 ML
     Route: 041
     Dates: start: 20191030, end: 20191101
  9. 0.9% SODIUM CHLORIDE INJECTION [Suspect]
     Active Substance: SODIUM CHLORIDE
     Dosage: ETOPOSIDE INJECTION 165 MG + NS 500 ML
     Route: 041
     Dates: start: 20191104, end: 20191105
  10. 0.9% SODIUM CHLORIDE INJECTION [Suspect]
     Active Substance: SODIUM CHLORIDE
     Dosage: DOSE RE-INTRODUCED, ETOPOSIDE INJECTION + NS
     Route: 041
  11. HOLOXAN [Suspect]
     Active Substance: IFOSFAMIDE
     Indication: EWING^S SARCOMA
     Dosage: IFOSFAMIDE INJECTION 3 G + NS 500 ML
     Route: 041
     Dates: start: 20191030, end: 20191101
  12. ETOPOSIDE. [Suspect]
     Active Substance: ETOPOSIDE
     Dosage: DOSE RE-INTRODUCED, ETOPOSIDE INJECTION + NS
     Route: 041

REACTIONS (1)
  - Bone marrow failure [Recovering/Resolving]

NARRATIVE: CASE EVENT DATE: 20191111
